FAERS Safety Report 13452633 (Version 1)
Quarter: 2017Q2

REPORT INFORMATION
  Report Type: Spontaneous
  Country: US (occurrence: US)
  Receive Date: 20170418
  Receipt Date: 20170418
  Transmission Date: 20170830
  Serious: Yes (Death)
  Sender: FDA-Public Use
  Company Number: US-MALLINCKRODT-T201701514

PATIENT
  Age: 36 Year
  Sex: Male

DRUGS (4)
  1. FENTANYL. [Concomitant]
     Active Substance: FENTANYL
     Indication: CANCER PAIN
     Dosage: 905.8 MCG/DAY
     Route: 037
  2. FENTANYL CITRATE. [Suspect]
     Active Substance: FENTANYL CITRATE
     Indication: PAIN
     Dosage: 400 ?G, Q6H
     Route: 048
     Dates: start: 20150422
  3. BACLOFEN. [Concomitant]
     Active Substance: BACLOFEN
     Indication: CANCER PAIN
     Dosage: 400 MCG/ML
     Route: 037
  4. HYDROMORPHONE [Concomitant]
     Active Substance: HYDROMORPHONE
     Indication: CANCER PAIN
     Dosage: 4 MG
     Route: 065

REACTIONS (1)
  - Fibrosarcoma [Fatal]

NARRATIVE: CASE EVENT DATE: 20150508
